FAERS Safety Report 18928502 (Version 2)
Quarter: 2021Q2

REPORT INFORMATION
  Report Type: Spontaneous
  Country: KZ (occurrence: KZ)
  Receive Date: 20210223
  Receipt Date: 20210407
  Transmission Date: 20210717
  Serious: Yes (Other)
  Sender: FDA-Public Use
  Company Number: KZ-PFIZER INC-2021150228

PATIENT
  Age: 29 Year
  Sex: Male

DRUGS (3)
  1. DOSTINEX [Suspect]
     Active Substance: CABERGOLINE
     Indication: PITUITARY TUMOUR BENIGN
     Dosage: 0.25 MG, WEEKLY
     Dates: start: 202011
  2. DOSTINEX [Suspect]
     Active Substance: CABERGOLINE
     Dosage: 0.5 MG, WEEKLY
  3. DOSTINEX [Suspect]
     Active Substance: CABERGOLINE
     Dosage: 0.5 MG
     Dates: start: 20210102

REACTIONS (5)
  - Malaise [Unknown]
  - Somnolence [Recovered/Resolved]
  - Drug ineffective [Recovered/Resolved]
  - Suspected counterfeit product [Unknown]
  - Bronchitis [Unknown]

NARRATIVE: CASE EVENT DATE: 20210105
